FAERS Safety Report 9860592 (Version 2)
Quarter: 2014Q1

REPORT INFORMATION
  Report Type: Spontaneous
  Country: AU (occurrence: AU)
  Receive Date: 20140202
  Receipt Date: 20140202
  Transmission Date: 20141002
  Serious: No
  Sender: FDA-Public Use
  Company Number: AU-ALLERGAN-1218137US

PATIENT
  Sex: Female

DRUGS (2)
  1. BOTOX [Suspect]
     Indication: SKIN WRINKLING
     Dosage: UNK, SINGLE
     Route: 030
  2. BOTOX [Suspect]
     Indication: SKIN WRINKLING

REACTIONS (4)
  - Skin hyperpigmentation [Recovering/Resolving]
  - Dark circles under eyes [Recovering/Resolving]
  - Swelling face [Recovering/Resolving]
  - Swelling face [Recovering/Resolving]
